FAERS Safety Report 4996380-9 (Version None)
Quarter: 2006Q2

REPORT INFORMATION
  Report Type: 
  Country: None (occurrence: None)
  Receive Date: 20060505
  Receipt Date: 20060404
  Transmission Date: 20061013
  Serious: Yes (Hospitalization)
  Sender: FDA-Public Use
  Company Number: 224552

PATIENT
  Age: 48 Year
  Sex: Female
  Weight: 65 kg

DRUGS (3)
  1. HERCEPTIN [Suspect]
     Indication: BREAST CANCER
     Dosage: Q3W, INTRAVENOUS
     Route: 042
     Dates: start: 20060317
  2. EPIRUBICIN [Suspect]
     Indication: BREAST CANCER
     Dosage: 156 MG, Q3W, INTRAVENOUS
     Route: 042
     Dates: start: 20060316
  3. CYCLOPHOSPHAMIDE [Suspect]
     Indication: BREAST CANCER
     Dosage: 1038 MG, Q3W, INTRAVENOUS
     Route: 042
     Dates: start: 20060316

REACTIONS (2)
  - LEUKOPENIA [None]
  - NEUTROPENIA [None]
